FAERS Safety Report 4280961-4 (Version None)
Quarter: 2004Q1

REPORT INFORMATION
  Report Type: 
  Country: None (occurrence: None)
  Receive Date: 20040122
  Receipt Date: 20031031
  Transmission Date: 20041129
  Serious: Yes (Other)
  Sender: FDA-Public Use
  Company Number: PHEH2003US10071

PATIENT
  Age: 63 Year
  Sex: Female

DRUGS (7)
  1. LUDIOMIL [Suspect]
     Indication: DEPRESSION
     Dosage: 40 MG, QD, ORAL
     Route: 048
     Dates: start: 19810101, end: 20010801
  2. ALBUTEROL [Concomitant]
  3. BUDESONIDE [Concomitant]
  4. PMS-CONJUGATED ESTORGENS (ESTROGENS CONJUGATED) [Concomitant]
  5. DIAZEPAM [Concomitant]
  6. HYDROCORTISONE [Concomitant]
  7. PROZAC [Concomitant]

REACTIONS (1)
  - TACHYCARDIA [None]
